FAERS Safety Report 10688889 (Version 1)
Quarter: 2015Q1

REPORT INFORMATION
  Report Type: Spontaneous
  Country: US (occurrence: US)
  Receive Date: 20150103
  Receipt Date: 20150103
  Transmission Date: 20150720
  Serious: No
  Sender: FDA-Public Use
  Company Number: US-BRISTOL-MYERS SQUIBB COMPANY-BMS-2014-000778

PATIENT
  Age: 86 Year
  Sex: Female
  Weight: 91 kg

DRUGS (1)
  1. BYDUREON [Suspect]
     Active Substance: EXENATIDE
     Indication: DIABETES MELLITUS
     Dosage: QWK
     Route: 058
     Dates: start: 20141203

REACTIONS (2)
  - Nausea [Recovering/Resolving]
  - Throat irritation [Unknown]

NARRATIVE: CASE EVENT DATE: 20141204
